FAERS Safety Report 10354422 (Version 1)
Quarter: 2014Q3

REPORT INFORMATION
  Report Type: Spontaneous
  Country: US (occurrence: US)
  Receive Date: 20140731
  Receipt Date: 20140731
  Transmission Date: 20150326
  Serious: Yes (Other)
  Sender: FDA-Public Use
  Company Number: US-PFIZER INC-2014212761

PATIENT
  Age: 44 Year
  Sex: Male
  Weight: 94.33 kg

DRUGS (1)
  1. CHANTIX [Suspect]
     Active Substance: VARENICLINE TARTRATE
     Indication: SMOKING CESSATION THERAPY
     Dosage: 0.5 MG, UNK
     Route: 048
     Dates: start: 201407, end: 201407

REACTIONS (8)
  - Incoherent [Unknown]
  - Hallucination [Unknown]
  - Depression [Unknown]
  - Swelling face [Unknown]
  - Abnormal behaviour [Unknown]
  - Drug withdrawal syndrome [Unknown]
  - Oropharyngeal pain [Unknown]
  - Convulsion [Unknown]

NARRATIVE: CASE EVENT DATE: 201407
